FAERS Safety Report 5145571-5 (Version None)
Quarter: 2006Q4

REPORT INFORMATION
  Report Type: 
  Country: None (occurrence: None)
  Receive Date: 20061102
  Receipt Date: 20061023
  Transmission Date: 20070319
  Serious: Yes (Hospitalization)
  Sender: FDA-Public Use
  Company Number: DE-2006-028342

PATIENT
  Age: 42 Year
  Sex: Female

DRUGS (1)
  1. ULTRAVIST 300 [Suspect]
     Indication: COMPUTERISED TOMOGRAM
     Dosage: 100 ML, 1 DOSE, INTRAVENOUS
     Route: 042
     Dates: start: 20060921, end: 20060921

REACTIONS (15)
  - ABDOMINAL PAIN UPPER [None]
  - ARTHROPATHY [None]
  - C-REACTIVE PROTEIN INCREASED [None]
  - CHILLS [None]
  - DYSPNOEA [None]
  - FEBRILE INFECTION [None]
  - FEELING COLD [None]
  - HOT FLUSH [None]
  - HYPERVENTILATION [None]
  - LEUKOCYTOSIS [None]
  - NAUSEA [None]
  - OEDEMA [None]
  - PRESYNCOPE [None]
  - SOMATOFORM DISORDER [None]
  - THYROID MASS [None]
